FAERS Safety Report 8707385 (Version 5)
Quarter: 2013Q1

REPORT INFORMATION
  Report Type: Spontaneous
  Country: US (occurrence: US)
  Receive Date: 20120803
  Receipt Date: 20130116
  Transmission Date: 20140127
  Serious: No
  Sender: FDA-Public Use
  Company Number: US-ASTRAZENECA-2012SE51834

PATIENT
  Age: 58 Year
  Sex: Female
  Weight: 70.3 kg

DRUGS (13)
  1. SEROQUEL XR [Suspect]
     Indication: BIPOLAR DISORDER
     Route: 048
     Dates: start: 201109
  2. SEROQUEL XR [Suspect]
     Indication: BIPOLAR I DISORDER
     Route: 048
     Dates: start: 201109
  3. SEROQUEL XR [Suspect]
     Indication: BIPOLAR DISORDER
     Route: 048
     Dates: start: 201109
  4. SEROQUEL XR [Suspect]
     Indication: BIPOLAR DISORDER
     Route: 048
     Dates: start: 201206
  5. SEROQUEL XR [Suspect]
     Indication: BIPOLAR I DISORDER
     Route: 048
     Dates: start: 201206
  6. SEROQUEL XR [Suspect]
     Indication: BIPOLAR DISORDER
     Route: 048
     Dates: start: 201206
  7. SEROQUEL XR [Suspect]
     Indication: BIPOLAR DISORDER
     Route: 048
  8. SEROQUEL XR [Suspect]
     Indication: BIPOLAR I DISORDER
     Route: 048
  9. SEROQUEL XR [Suspect]
     Indication: BIPOLAR DISORDER
     Route: 048
  10. SEROQUEL XR [Suspect]
     Indication: BIPOLAR DISORDER
     Route: 048
  11. SEROQUEL XR [Suspect]
     Indication: BIPOLAR I DISORDER
     Route: 048
  12. SEROQUEL XR [Suspect]
     Indication: BIPOLAR DISORDER
     Route: 048
  13. LITHIUM [Concomitant]
     Indication: AFFECTIVE DISORDER
     Dosage: DAILY
     Route: 048
     Dates: start: 201207, end: 20121017

REACTIONS (9)
  - Panic attack [Unknown]
  - Memory impairment [Unknown]
  - Insomnia [Unknown]
  - Balance disorder [Unknown]
  - Gait disturbance [Unknown]
  - Fall [Unknown]
  - Hallucination, auditory [Unknown]
  - Intentional drug misuse [Unknown]
  - Drug dose omission [Unknown]
